FAERS Safety Report 4532412-X (Version None)
Quarter: 2004Q4

REPORT INFORMATION
  Report Type: 
  Country: None (occurrence: None)
  Receive Date: 20041217
  Receipt Date: 20041209
  Transmission Date: 20050328
  Serious: Yes (Hospitalization)
  Sender: FDA-Public Use
  Company Number: HQWYE717401DEC04

PATIENT
  Sex: Female

DRUGS (2)
  1. EFFEXOR [Suspect]
     Indication: AGGRESSION
     Dosage: ORAL
     Route: 048
     Dates: start: 20030501, end: 20040601
  2. EFFEXOR [Suspect]
     Indication: INTENTIONAL SELF-INJURY
     Dosage: ORAL
     Route: 048
     Dates: start: 20030501, end: 20040601

REACTIONS (12)
  - ABDOMINAL PAIN UPPER [None]
  - ABNORMAL BEHAVIOUR [None]
  - AGGRESSION [None]
  - AMNESIA [None]
  - CHEST PAIN [None]
  - DRY MOUTH [None]
  - HYPOAESTHESIA [None]
  - MUSCULOSKELETAL STIFFNESS [None]
  - PALLOR [None]
  - SOMNOLENCE [None]
  - SUICIDE ATTEMPT [None]
  - WEIGHT INCREASED [None]
